FAERS Safety Report 7005690-5 (Version None)
Quarter: 2010Q3

REPORT INFORMATION
  Report Type: 
  Country: None (occurrence: None)
  Receive Date: 20100921
  Receipt Date: 20100915
  Transmission Date: 20110219
  Serious: Yes (Hospitalization, Other)
  Sender: FDA-Public Use
  Company Number: US-BAXTER-2010BH017497

PATIENT
  Age: 81 Year
  Sex: Male

DRUGS (10)
  1. CIPROFLOXACIN IN DEXTROSE 5% [Suspect]
     Indication: ENTEROCOLITIS INFECTIOUS
     Route: 042
     Dates: start: 20090203, end: 20090208
  2. CARDIZEM [Concomitant]
     Indication: HYPERTENSION
     Route: 048
  3. LISINOPRIL [Concomitant]
     Indication: HYPERTENSION
     Route: 048
  4. TRIAMTERENE AND HYDROCHLOROTHIAZIDE [Concomitant]
     Indication: HYPERTENSION
     Route: 048
  5. ADVIL LIQUI-GELS [Concomitant]
     Indication: HYPERTENSION
     Route: 048
  6. FLAGYL [Concomitant]
     Indication: ENTEROCOLITIS INFECTIOUS
     Route: 042
     Dates: start: 20090203
  7. DEMEROL [Concomitant]
     Indication: PAIN
     Route: 065
     Dates: start: 20090203
  8. REGLAN [Concomitant]
     Indication: NAUSEA
     Route: 048
     Dates: start: 20090203
  9. ESOMEPRAZOLE MAGNESIUM [Concomitant]
     Indication: PROPHYLAXIS
     Route: 048
     Dates: start: 20090203
  10. LOVENOX [Concomitant]
     Indication: PROPHYLAXIS
     Route: 058
     Dates: start: 20090203

REACTIONS (2)
  - ANTIBIOTIC RESISTANT STAPHYLOCOCCUS TEST POSITIVE [None]
  - STEVENS-JOHNSON SYNDROME [None]
